FAERS Safety Report 4306775-4 (Version None)
Quarter: 2004Q1

REPORT INFORMATION
  Report Type: 
  Country: None (occurrence: None)
  Receive Date: 20040225
  Receipt Date: 20040212
  Transmission Date: 20041129
  Serious: Yes (Hospitalization)
  Sender: FDA-Public Use
  Company Number: 040120-0000172

PATIENT
  Age: 41 Year
  Sex: Male

DRUGS (2)
  1. DESOXYN [Suspect]
     Indication: DRUG USE FOR UNKNOWN INDICATION
     Dosage: UNKNOWN; IV
     Route: 042
  2. AMPHETAMINE (UNKNOWN) [Suspect]
     Indication: DRUG USE FOR UNKNOWN INDICATION
     Dosage: UNKNOWN
     Route: 065

REACTIONS (20)
  - ACID BASE BALANCE ABNORMAL [None]
  - AGGRESSION [None]
  - BLOOD BICARBONATE DECREASED [None]
  - BLOOD CREATINE INCREASED [None]
  - BLOOD POTASSIUM INCREASED [None]
  - COAGULOPATHY [None]
  - DRUG ABUSER [None]
  - EXCITABILITY [None]
  - HALLUCINATION [None]
  - HEART RATE INCREASED [None]
  - HEPATIC FAILURE [None]
  - HYPERHIDROSIS [None]
  - HYPERTHERMIA [None]
  - LABORATORY TEST ABNORMAL [None]
  - PCO2 DECREASED [None]
  - PSYCHOTIC DISORDER [None]
  - PULMONARY CONGESTION [None]
  - RHABDOMYOLYSIS [None]
  - THERAPEUTIC AGENT TOXICITY [None]
  - WHITE BLOOD CELL COUNT INCREASED [None]
